FAERS Safety Report 18107741 (Version 1)
Quarter: 2020Q3

REPORT INFORMATION
  Report Type: Spontaneous
  Country: US (occurrence: US)
  Receive Date: 20200803
  Receipt Date: 20200803
  Transmission Date: 20201103
  Serious: No
  Sender: FDA-Public Use
  Company Number: None

PATIENT
  Age: 30 Year
  Sex: Female
  Weight: 55 kg

DRUGS (1)
  1. ENOXAPRIN SODIUM INJECTION [Suspect]
     Active Substance: ENOXAPARIN SODIUM

REACTIONS (3)
  - Device malfunction [None]
  - Device physical property issue [None]
  - Injury associated with device [None]

NARRATIVE: CASE EVENT DATE: 20200730
